FAERS Safety Report 10716948 (Version 3)
Quarter: 2015Q2

REPORT INFORMATION
  Report Type: Report from Study
  Country: JP (occurrence: JP)
  Receive Date: 20150116
  Receipt Date: 20150406
  Transmission Date: 20150821
  Serious: Yes (Other)
  Sender: FDA-Public Use
  Company Number: JP-OTSUKA-JP-2015-10167

PATIENT

DRUGS (7)
  1. LASIX M [Concomitant]
     Active Substance: FUROSEMIDE
     Indication: OEDEMA DUE TO HEPATIC DISEASE
     Dosage: 40 MG MILLIGRAM(S), DAILY DOSE
     Route: 048
  2. LASIX P [Concomitant]
     Active Substance: FUROSEMIDE
     Indication: OEDEMA DUE TO HEPATIC DISEASE
     Dosage: 20 MG MILLIGRAM(S), DAILY DOSE
     Route: 042
     Dates: start: 20141002, end: 20141011
  3. SAMSCA [Suspect]
     Active Substance: TOLVAPTAN
     Indication: OEDEMA DUE TO HEPATIC DISEASE
     Dosage: 7.5 MG MILLIGRAM(S), QAM
     Route: 048
     Dates: start: 20140903, end: 20141118
  4. ALDACTONE [Concomitant]
     Active Substance: SPIRONOLACTONE
     Indication: OEDEMA DUE TO HEPATIC DISEASE
     Dosage: 50 MG MILLIGRAM(S), DAILY DOSE
     Route: 048
  5. ALBUMIN [Concomitant]
     Active Substance: ALBUMIN (HUMAN)
     Indication: OEDEMA DUE TO HEPATIC DISEASE
     Dosage: 50 ML MILLILITRE(S), DAILY DOSE
     Route: 042
     Dates: start: 20141002, end: 20141004
  6. ALBUMIN [Concomitant]
     Active Substance: ALBUMIN (HUMAN)
     Indication: HYPOALBUMINAEMIA
     Dosage: 50 ML MILLILITRE(S), DAILY DOSE
     Route: 042
     Dates: start: 20141006, end: 20141008
  7. SOLDACTONE [Concomitant]
     Active Substance: CANRENOATE POTASSIUM
     Indication: OEDEMA DUE TO HEPATIC DISEASE
     Dosage: 200 MG MILLIGRAM(S), DAILY DOSE
     Route: 042
     Dates: start: 20141002, end: 20141011

REACTIONS (1)
  - Hyperbilirubinaemia [Unknown]
